FAERS Safety Report 12676612 (Version 3)
Quarter: 2016Q3

REPORT INFORMATION
  Report Type: Spontaneous
  Country: US (occurrence: US)
  Receive Date: 20160823
  Receipt Date: 20160926
  Transmission Date: 20161109
  Serious: No
  Sender: FDA-Public Use
  Company Number: US-PFIZER INC-2016395725

PATIENT
  Age: 46 Year
  Sex: Female

DRUGS (1)
  1. RELPAX [Suspect]
     Active Substance: ELETRIPTAN HYDROBROMIDE
     Indication: HEADACHE
     Dosage: 120 MG, WEEKLY (PO WITH ONSET OF HEADACHE MAY REPEAT IN 2 HRS 3 PILLS/WK)
     Route: 048

REACTIONS (2)
  - Headache [Unknown]
  - Nausea [Unknown]
